FAERS Safety Report 4393020-7 (Version None)
Quarter: 2004Q3

REPORT INFORMATION
  Report Type: 
  Country: None (occurrence: None)
  Receive Date: 20040708
  Receipt Date: 20040615
  Transmission Date: 20050211
  Serious: Yes (Other)
  Sender: FDA-Public Use
  Company Number: ZA-GLAXOSMITHKLINE-B0335692A

PATIENT
  Age: 25 Year
  Sex: Female
  Weight: 63 kg

DRUGS (3)
  1. ZYBAN [Suspect]
     Dosage: 150MG TWICE PER DAY
     Route: 048
     Dates: start: 20040117, end: 20040414
  2. NORETHISTERONE [Concomitant]
     Indication: CONTRACEPTION
     Dosage: 200MG PER DAY
  3. VIOXX [Concomitant]
     Indication: ARTHRITIS
     Route: 065

REACTIONS (6)
  - ARTHRALGIA [None]
  - ARTHRITIS [None]
  - ARTHRITIS REACTIVE [None]
  - JOINT SWELLING [None]
  - LOCALISED OSTEOARTHRITIS [None]
  - URINARY TRACT INFECTION [None]
